FAERS Safety Report 10408016 (Version 1)
Quarter: 2014Q3

REPORT INFORMATION
  Report Type: Spontaneous
  Country: US (occurrence: US)
  Receive Date: 20140825
  Receipt Date: 20140825
  Transmission Date: 20150326
  Serious: Yes (Death, Other)
  Sender: FDA-Public Use
  Company Number: US-ELI_LILLY_AND_COMPANY-US201408007629

PATIENT
  Age: 53 Year
  Sex: Male

DRUGS (1)
  1. FORTEO [Suspect]
     Active Substance: TERIPARATIDE
     Indication: OSTEOPOROSIS
     Dosage: UNK, QD
     Route: 065
     Dates: start: 200705, end: 200903

REACTIONS (6)
  - Spinal compression fracture [Unknown]
  - Bone density decreased [Unknown]
  - Blood testosterone decreased [Unknown]
  - Pharyngeal cancer [Fatal]
  - Drug ineffective [Unknown]
  - Pleural effusion [Unknown]

NARRATIVE: CASE EVENT DATE: 200703
